FAERS Safety Report 24805808 (Version 2)
Quarter: 2025Q1

REPORT INFORMATION
  Report Type: Spontaneous
  Country: US (occurrence: US)
  Receive Date: 20250103
  Receipt Date: 20250115
  Transmission Date: 20250409
  Serious: No
  Sender: PFIZER
  Company Number: US-PFIZER INC-202400332670

PATIENT
  Age: 70 Year
  Sex: Male
  Weight: 67 kg

DRUGS (2)
  1. CARBOPLATIN [Suspect]
     Active Substance: CARBOPLATIN
     Dates: start: 202410
  2. ABRAXANE [Suspect]
     Active Substance: PACLITAXEL
     Dates: start: 202410

REACTIONS (1)
  - Neoplasm progression [Unknown]

NARRATIVE: CASE EVENT DATE: 20240101
